FAERS Safety Report 10246230 (Version 1)
Quarter: 2014Q2

REPORT INFORMATION
  Report Type: Spontaneous
  Country: US (occurrence: None)
  Receive Date: 20140617
  Receipt Date: 20140617
  Transmission Date: 20141212
  Serious: Yes (Other)
  Sender: FDA-Public Use
  Company Number: US-I00036

PATIENT
  Age: 61 Year
  Sex: Male

DRUGS (5)
  1. MILTEFOSINE [Suspect]
     Indication: BALAMUTHIA INFECTION
  2. AZITHROMYCIN [Suspect]
     Indication: BALAMUTHIA INFECTION
  3. ALBENDAZOLE [Suspect]
     Indication: BALAMUTHIA INFECTION
  4. FLUCONAZOLE [Suspect]
     Indication: BALAMUTHIA INFECTION
  5. PENTAMIDINE [Suspect]
     Indication: BALAMUTHIA INFECTION
     Route: 042

REACTIONS (6)
  - Transaminases increased [None]
  - Decreased appetite [None]
  - Nausea [None]
  - Weight decreased [None]
  - Malaise [None]
  - Off label use [None]
